FAERS Safety Report 5015830-5 (Version None)
Quarter: 2006Q2

REPORT INFORMATION
  Report Type: 
  Country: None (occurrence: None)
  Receive Date: 20060525
  Receipt Date: 20060515
  Transmission Date: 20061013
  Serious: Yes (Other)
  Sender: FDA-Public Use
  Company Number: 2006JP001259

PATIENT
  Age: 34 Year
  Sex: Female
  Weight: 44 kg

DRUGS (9)
  1. PROGRAF [Suspect]
     Indication: RENAL TRANSPLANT
     Dosage: SEE IMAGE
     Route: 048
     Dates: start: 20050523, end: 20050907
  2. PROGRAF [Suspect]
     Indication: RENAL TRANSPLANT
     Dosage: SEE IMAGE
     Route: 048
     Dates: start: 20050908
  3. CELLCEPT [Concomitant]
  4. NEUER (CETRAXATE HYDROCHLORIDE) CAPSULE [Concomitant]
  5. FLORID GEL (MICONAZOLE) GEL [Concomitant]
  6. TAKEPRON (LANSOPRAZOLE) ORODISPERSABLE CR TABLET [Concomitant]
  7. MEDROL [Concomitant]
  8. BAKTAR (SULFAMETHOXAZOLE, TRIMETHOPRIM) TABLET [Concomitant]
  9. ZOVIRAX [Concomitant]

REACTIONS (3)
  - DRUG TOXICITY [None]
  - ILL-DEFINED DISORDER [None]
  - RENAL TUBULAR DISORDER [None]
